FAERS Safety Report 6383857-7 (Version None)
Quarter: 2009Q3

REPORT INFORMATION
  Report Type: 
  Country: None (occurrence: None)
  Receive Date: 20090929
  Receipt Date: 20090929
  Transmission Date: 20100115
  Serious: Yes (Hospitalization)
  Sender: FDA-Public Use
  Company Number: None

PATIENT
  Age: 47 Year
  Sex: Male
  Weight: 90.7194 kg

DRUGS (2)
  1. METHADONE HYDROCHLORIDE [Suspect]
     Indication: PAIN MANAGEMENT
     Dosage: 10MG X4 DAILY PO
     Route: 048
     Dates: start: 19960901, end: 19990501
  2. MORPHINE [Suspect]
     Indication: PAIN MANAGEMENT
     Dosage: 30MG X3 DAILY
     Dates: start: 19991001, end: 20070813

REACTIONS (8)
  - CARDIAC DISORDER [None]
  - DECREASED APPETITE [None]
  - DRUG HYPERSENSITIVITY [None]
  - LOSS OF EMPLOYMENT [None]
  - MYOCARDIAL INFARCTION [None]
  - NAUSEA [None]
  - RESPIRATORY DISORDER [None]
  - VOMITING [None]
